FAERS Safety Report 23241360 (Version 2)
Quarter: 2023Q4

REPORT INFORMATION
  Report Type: Spontaneous
  Country: CN (occurrence: CN)
  Receive Date: 20231129
  Receipt Date: 20231204
  Transmission Date: 20240110
  Serious: Yes (Life-Threatening, Other)
  Sender: FDA-Public Use
  Company Number: CN-PFIZER INC-202300396711

PATIENT
  Age: 58 Year
  Sex: Male

DRUGS (6)
  1. ISAVUCONAZONIUM SULFATE [Suspect]
     Active Substance: ISAVUCONAZONIUM SULFATE
     Dosage: UNK, 3X/DAY (Q8)
     Route: 065
  2. TIGECYCLINE [Suspect]
     Active Substance: TIGECYCLINE
     Dosage: UNK
     Route: 065
  3. MINOCYCLINE [Suspect]
     Active Substance: MINOCYCLINE HYDROCHLORIDE
     Dosage: UNK
     Route: 065
  4. ETIMICIN SULFATE [Suspect]
     Active Substance: ETIMICIN SULFATE
     Dosage: UNK
     Route: 065
  5. COLISTIN [Suspect]
     Active Substance: COLISTIN
     Dosage: UNK
     Route: 065
  6. ERAVACYCLINE [Suspect]
     Active Substance: ERAVACYCLINE
     Dosage: UNK
     Route: 065

REACTIONS (9)
  - Altered state of consciousness [Unknown]
  - Respiratory disorder [Unknown]
  - Mydriasis [Unknown]
  - Pneumocystis jirovecii infection [Unknown]
  - Apnoea [Recovered/Resolved]
  - Coma [Unknown]
  - Dyspnoea [Unknown]
  - Enterococcal infection [Unknown]
  - Acinetobacter test positive [Unknown]
